FAERS Safety Report 20419046 (Version 1)
Quarter: 2022Q1

REPORT INFORMATION
  Report Type: Other
  Country: JP (occurrence: None)
  Receive Date: 20220203
  Receipt Date: 20220203
  Transmission Date: 20220423
  Serious: Yes (Death, Other)
  Sender: FDA-Public Use
  Company Number: JP-ROCHE-3012043

PATIENT
  Age: 77 Year
  Sex: Male

DRUGS (3)
  1. RITUXIMAB [Suspect]
     Active Substance: RITUXIMAB
     Indication: B-cell lymphoma
     Route: 041
     Dates: start: 20210831, end: 20211026
  2. VALACYCLOVIR HYDROCHLORIDE [Suspect]
     Active Substance: VALACYCLOVIR HYDROCHLORIDE
     Indication: B-cell lymphoma
     Route: 048
     Dates: start: 20210928, end: 20210928
  3. POLATUZUMAB VEDOTIN [Suspect]
     Active Substance: POLATUZUMAB VEDOTIN
     Indication: B-cell lymphoma
     Route: 042
     Dates: start: 20210901, end: 20210901

REACTIONS (7)
  - Pneumocystis jirovecii pneumonia [Fatal]
  - Haemoglobin decreased [Not Recovered/Not Resolved]
  - Platelet count decreased [Not Recovered/Not Resolved]
  - Renal disorder [Not Recovered/Not Resolved]
  - Hypokalaemia [Recovered/Resolved]
  - Liver disorder [Recovering/Resolving]
  - Aspergillus infection [Unknown]

NARRATIVE: CASE EVENT DATE: 20210901
